FAERS Safety Report 18575238 (Version 1)
Quarter: 2020Q4

REPORT INFORMATION
  Report Type: Spontaneous
  Country: GB (occurrence: GB)
  Receive Date: 20201203
  Receipt Date: 20201203
  Transmission Date: 20210114
  Serious: Yes (Hospitalization)
  Sender: FDA-Public Use
  Company Number: GB-MYLANLABS-2020M1097875

PATIENT
  Age: 82 Year
  Sex: Female
  Weight: 61 kg

DRUGS (15)
  1. FELODIPINE. [Suspect]
     Active Substance: FELODIPINE
     Indication: PRODUCT USED FOR UNKNOWN INDICATION
     Dosage: 2.5 MILLIGRAM
     Dates: start: 20201023
  2. MINTEC [Concomitant]
     Dosage: 3 DOSAGE FORM, QD
     Dates: start: 20200311
  3. TRIMIPRAMINE MALEATE. [Concomitant]
     Active Substance: TRIMIPRAMINE MALEATE
     Dosage: AT 6 PM.
     Dates: start: 20200311
  4. INDAPAMIDE. [Concomitant]
     Active Substance: INDAPAMIDE
     Dosage: EACH MORNING.
     Dates: start: 20200825
  5. FERROUS FUMARATE [Concomitant]
     Active Substance: FERROUS FUMARATE
     Dosage: 2 DOSAGE FORM, QD
     Dates: start: 20200401
  6. SIMVASTATIN. [Concomitant]
     Active Substance: SIMVASTATIN
     Dosage: 1 DOSAGE FORM, QD (WITH OR AFTER EVENING MEAL)
     Dates: start: 20200311
  7. ADCAL                              /07357001/ [Concomitant]
     Active Substance: CALCIUM CARBONATE
     Dosage: 4 DOSAGE FORM, QD
     Dates: start: 20200311
  8. FENBID [Concomitant]
     Active Substance: IBUPROFEN
     Dosage: APPLY 3-4 TIMES A DAY.
     Dates: start: 20201002, end: 20201023
  9. RAMIPRIL. [Concomitant]
     Active Substance: RAMIPRIL
     Dosage: 1 DOSAGE FORM, QD
     Dates: start: 20200401
  10. LAXIDO [Concomitant]
     Active Substance: POLYETHYLENE GLYCOL 3350\POTASSIUM CHLORIDE\SODIUM BICARBONATE\SODIUM CHLORIDE
     Dosage: TWO TO THREE TIMES A DAY.
     Dates: start: 20200311
  11. ESOMEPRAZOLE. [Concomitant]
     Active Substance: ESOMEPRAZOLE MAGNESIUM
     Dosage: EACH MORNING (LONG TERM).
     Dates: start: 20200311
  12. SUMATRIPTAN. [Concomitant]
     Active Substance: SUMATRIPTAN
     Indication: MIGRAINE
     Dosage: FOR MIGRAINE ATTACK. IF SYMPTOM.
     Dates: start: 20190923
  13. MEBEVERINE HYDROCHLORIDE [Concomitant]
     Active Substance: MEBEVERINE HYDROCHLORIDE
     Dosage: 3 DOSAGE FORM, QD (TWENTY MINUTE)
     Dates: start: 20200311
  14. IBANDRONIC ACID. [Concomitant]
     Active Substance: IBANDRONIC ACID
     Dosage: 1 HOUR BEFORE BREAKFAST.
     Dates: start: 20200311
  15. SENNA                              /00142201/ [Concomitant]
     Active Substance: SENNA LEAF
     Dosage: AT NIGHT.
     Dates: start: 20200311

REACTIONS (1)
  - Purpura [Recovered/Resolved]

NARRATIVE: CASE EVENT DATE: 20201023
